FAERS Safety Report 25434129 (Version 7)
Quarter: 2025Q3

REPORT INFORMATION
  Report Type: Spontaneous
  Country: US (occurrence: US)
  Receive Date: 20250613
  Receipt Date: 20250926
  Transmission Date: 20251021
  Serious: No
  Sender: PFIZER
  Company Number: US-PFIZER INC-202500120154

PATIENT
  Age: 42 Year
  Sex: Female

DRUGS (4)
  1. TIVDAK [Suspect]
     Active Substance: TISOTUMAB VEDOTIN-TFTV
     Dosage: 163 MG (VIA IV) Q21 DAYS (EVERY 21 DAYS)
     Route: 042
  2. TIVDAK [Suspect]
     Active Substance: TISOTUMAB VEDOTIN-TFTV
  3. TIVDAK [Suspect]
     Active Substance: TISOTUMAB VEDOTIN-TFTV
  4. TIVDAK [Suspect]
     Active Substance: TISOTUMAB VEDOTIN-TFTV
     Dosage: 158 MG INFUION, EVERY 21 DAYS

REACTIONS (2)
  - Weight fluctuation [Unknown]
  - Off label use [Unknown]

NARRATIVE: CASE EVENT DATE: 20250101
